FAERS Safety Report 19129062 (Version 1)
Quarter: 2021Q2

REPORT INFORMATION
  Report Type: Spontaneous
  Country: US (occurrence: US)
  Receive Date: 20210413
  Receipt Date: 20210413
  Transmission Date: 20210717
  Serious: No
  Sender: FDA-Public Use
  Company Number: US-SA-2021SA120773

PATIENT
  Sex: Female

DRUGS (10)
  1. DUPIXENT [Suspect]
     Active Substance: DUPILUMAB
     Indication: DERMATITIS ATOPIC
     Dosage: 300 MG, QOW
     Route: 058
  2. CARVEDILOL. [Concomitant]
     Active Substance: CARVEDILOL
  3. DICYCLOMINE [Concomitant]
     Active Substance: DICYCLOMINE HYDROCHLORIDE
  4. HYDROXYZINE [Concomitant]
     Active Substance: HYDROXYZINE HYDROCHLORIDE
     Dosage: 25MG
  5. OFLOXACIN. [Concomitant]
     Active Substance: OFLOXACIN
     Dosage: SOLUTION
  6. PROLENSA [Concomitant]
     Active Substance: BROMFENAC SODIUM
  7. ALBUTEROL [SALBUTAMOL] [Concomitant]
     Active Substance: ALBUTEROL
  8. DILTIAZEM. [Concomitant]
     Active Substance: DILTIAZEM
  9. PREDNISOLONE. [Concomitant]
     Active Substance: PREDNISOLONE
  10. TRAZODONE [Concomitant]
     Active Substance: TRAZODONE HYDROCHLORIDE
     Dosage: 100MG

REACTIONS (3)
  - Eczema [Unknown]
  - Pruritus [Unknown]
  - Drug ineffective [Unknown]
